FAERS Safety Report 6075978-3 (Version None)
Quarter: 2009Q1

REPORT INFORMATION
  Report Type: 
  Country: None (occurrence: None)
  Receive Date: 20090212
  Receipt Date: 20090204
  Transmission Date: 20090719
  Serious: Yes (Hospitalization, Disabling)
  Sender: FDA-Public Use
  Company Number: JP-SANOFI-SYNTHELABO-A01200816538

PATIENT
  Sex: Male
  Weight: 80 kg

DRUGS (6)
  1. TAKEPRON [Concomitant]
     Indication: STENT PLACEMENT
     Route: 048
     Dates: start: 20081208
  2. TAKEPRON [Concomitant]
     Indication: ACUTE MYOCARDIAL INFARCTION
     Route: 048
     Dates: start: 20081208
  3. ASPIRIN [Concomitant]
     Indication: STENT PLACEMENT
     Route: 048
     Dates: start: 20081203
  4. ASPIRIN [Concomitant]
     Indication: ACUTE MYOCARDIAL INFARCTION
     Route: 048
     Dates: start: 20081203
  5. PLAVIX [Suspect]
     Indication: STENT PLACEMENT
     Dosage: 300 MG ONCE FOLLOWED BY 75 MG DAILY
     Route: 048
     Dates: start: 20081203, end: 20081212
  6. PLAVIX [Suspect]
     Indication: ACUTE MYOCARDIAL INFARCTION
     Dosage: 300 MG ONCE FOLLOWED BY 75 MG DAILY
     Route: 048
     Dates: start: 20081203, end: 20081212

REACTIONS (2)
  - CHOLESTASIS [None]
  - JAUNDICE CHOLESTATIC [None]
